FAERS Safety Report 8394959-8 (Version None)
Quarter: 2012Q2

REPORT INFORMATION
  Report Type: 
  Country: None (occurrence: None)
  Receive Date: 20120530
  Receipt Date: 20120111
  Transmission Date: 20120825
  Serious: No
  Sender: FDA-Public Use
  Company Number: US-GLAXOSMITHKLINE-A0961461A

PATIENT
  Age: 6 Year
  Sex: Female
  Weight: 14.6 kg

DRUGS (6)
  1. REVATIO [Concomitant]
     Dosage: 30MG THREE TIMES PER DAY
  2. DIGOXIN [Concomitant]
     Dosage: 50MCG TWICE PER DAY
  3. FLOLAN [Suspect]
     Indication: PULMONARY HYPERTENSION
     Dosage: 167.2NGKM UNKNOWN
     Route: 065
     Dates: start: 20090327
  4. TRACLEER [Concomitant]
     Dosage: 31.25MG TWICE PER DAY
  5. FUROSEMIDE [Concomitant]
     Dosage: 10MG PER DAY
  6. WARFARIN SODIUM [Concomitant]
     Dosage: .5MG PER DAY

REACTIONS (2)
  - MUSCULOSKELETAL PAIN [None]
  - FATIGUE [None]
